FAERS Safety Report 4407084-5 (Version None)
Quarter: 2004Q3

REPORT INFORMATION
  Report Type: 
  Country: None (occurrence: None)
  Receive Date: 20040721
  Receipt Date: 20040706
  Transmission Date: 20050211
  Serious: Yes (Other)
  Sender: FDA-Public Use
  Company Number: 0104-1732

PATIENT
  Age: 60 Year
  Sex: Female
  Weight: 67.1324 kg

DRUGS (15)
  1. ADVICOR [Suspect]
     Indication: DYSLIPIDAEMIA
     Dosage: 1 TABLET (S), QHS PO
     Route: 048
     Dates: start: 20031103, end: 20040706
  2. BIAXIN [Suspect]
     Indication: INFLUENZA LIKE ILLNESS
     Dates: start: 20030601, end: 20030623
  3. ACCUPRIL [Concomitant]
  4. LEVOXYL [Concomitant]
  5. PLAVIX [Concomitant]
  6. SERZONE [Concomitant]
  7. NORVASC [Concomitant]
  8. LASIX [Concomitant]
  9. BABY SPIRIN [Concomitant]
  10. INSULIN [Concomitant]
  11. TOPROL-XL [Concomitant]
  12. MULTI-VITAMIN [Concomitant]
  13. IRON [Concomitant]
  14. CALCIUM [Concomitant]
  15. ARANESP [Concomitant]

REACTIONS (1)
  - RHABDOMYOLYSIS [None]
